FAERS Safety Report 20164567 (Version 1)
Quarter: 2021Q4

REPORT INFORMATION
  Report Type: Spontaneous
  Country: US (occurrence: None)
  Receive Date: 20211208
  Receipt Date: 20211208
  Transmission Date: 20220303
  Serious: Yes (Hospitalization)
  Sender: FDA-Public Use
  Company Number: None

PATIENT
  Age: 66 Year
  Sex: Female
  Weight: 53.2 kg

DRUGS (1)
  1. BREYANZI [Suspect]
     Active Substance: LISOCABTAGENE MARALEUCEL

REACTIONS (7)
  - Cytokine release syndrome [None]
  - Fatigue [None]
  - Hypotension [None]
  - C-reactive protein increased [None]
  - Serum ferritin increased [None]
  - Neurotoxicity [None]
  - Seizure [None]

NARRATIVE: CASE EVENT DATE: 20211102
